FAERS Safety Report 7206407-1 (Version None)
Quarter: 2010Q4

REPORT INFORMATION
  Report Type: 
  Country: None (occurrence: None)
  Receive Date: 20101217
  Receipt Date: 20101213
  Transmission Date: 20110411
  Serious: Yes (Other)
  Sender: FDA-Public Use
  Company Number: 2010CP000324

PATIENT
  Age: 30 Year
  Sex: Male

DRUGS (3)
  1. PERFALGAN (PARACETAMOL) [Suspect]
     Indication: PROPHYLAXIS
     Dosage: 1 DOSAGE FORM; IV
     Route: 042
  2. CEFUROXIME [Suspect]
  3. ANESTHESIA (NO PREF. NAME) [Suspect]
     Indication: ANAESTHESIA

REACTIONS (1)
  - BRADYCARDIA [None]
